FAERS Safety Report 24224115 (Version 1)
Quarter: 2024Q3

REPORT INFORMATION
  Report Type: Spontaneous
  Country: US (occurrence: None)
  Receive Date: 20240818
  Receipt Date: 20240818
  Transmission Date: 20241017
  Serious: Yes (Other)
  Sender: Public
  Company Number: None

PATIENT
  Age: 76 Year
  Sex: Female
  Weight: 60 kg

DRUGS (4)
  1. MULTAQ [Suspect]
     Active Substance: DRONEDARONE
     Indication: Atrial fibrillation
     Dosage: 2 TABLETS TWICE A DAY ORAL ?
     Route: 048
     Dates: start: 20240724, end: 20240805
  2. METOPROLOL [Suspect]
     Active Substance: METOPROLOL
  3. TIKOSYN [Suspect]
     Active Substance: DOFETILIDE
  4. ELIQUIS [Suspect]
     Active Substance: APIXABAN

REACTIONS (3)
  - Fatigue [None]
  - Nausea [None]
  - Liver function test abnormal [None]

NARRATIVE: CASE EVENT DATE: 20240726
